FAERS Safety Report 21833658 (Version 2)
Quarter: 2023Q1

REPORT INFORMATION
  Report Type: Report from Study
  Country: US (occurrence: US)
  Receive Date: 20230107
  Receipt Date: 20230109
  Transmission Date: 20230418
  Serious: No
  Sender: FDA-Public Use
  Company Number: US-002147023-NVSC2023US003208

PATIENT
  Sex: Female

DRUGS (1)
  1. COSENTYX [Suspect]
     Active Substance: SECUKINUMAB
     Indication: Micturition disorder
     Dosage: 300 MG, QW
     Route: 058
     Dates: start: 20221216

REACTIONS (2)
  - Pollakiuria [Unknown]
  - Product use in unapproved indication [Unknown]
